FAERS Safety Report 10205322 (Version 1)
Quarter: 2014Q2

REPORT INFORMATION
  Report Type: Spontaneous
  Country: US (occurrence: US)
  Receive Date: 20140529
  Receipt Date: 20140529
  Transmission Date: 20141212
  Serious: No
  Sender: FDA-Public Use
  Company Number: US-SA-2014SA039616

PATIENT
  Age: 76 Year
  Sex: Male
  Weight: 99.7 kg

DRUGS (4)
  1. LANTUS SOLOSTAR [Suspect]
     Indication: PRODUCT USED FOR UNKNOWN INDICATION
     Dosage: DOSE:60 UNIT(S)
     Route: 058
     Dates: start: 2014
  2. LANTUS SOLOSTAR [Suspect]
     Indication: PRODUCT USED FOR UNKNOWN INDICATION
     Dosage: DOSE:50 UNIT(S)
     Route: 058
     Dates: start: 2014
  3. SOLOSTAR [Concomitant]
     Indication: DEVICE THERAPY
     Dosage: DOSE:60 UNIT(S)
     Route: 058
     Dates: start: 2014
  4. SOLOSTAR [Concomitant]
     Indication: DEVICE THERAPY
     Dosage: DOSE:50 UNIT(S)
     Route: 058
     Dates: start: 2014

REACTIONS (2)
  - Drug administration error [Unknown]
  - Drug dose omission [Unknown]
